FAERS Safety Report 7943161-X (Version None)
Quarter: 2011Q4

REPORT INFORMATION
  Report Type: 
  Country: None (occurrence: None)
  Receive Date: 20111128
  Receipt Date: 20111117
  Transmission Date: 20120403
  Serious: Yes (Hospitalization, Other)
  Sender: FDA-Public Use
  Company Number: PHHY2011FR96863

PATIENT
  Sex: Female

DRUGS (13)
  1. ACETAMINOPHEN [Concomitant]
  2. SECTRAL [Concomitant]
     Dosage: 200 MG, DAILY
     Route: 048
  3. MYCOPHENOLATE MOFETIL (CELLCEPT) [Suspect]
     Dosage: 250 MG, BID
     Route: 048
     Dates: start: 19660101
  4. PANTOPRAZOLE SODIUM [Concomitant]
     Dosage: 20 MG, DAILY
  5. PREDNISONE TAB [Concomitant]
     Dosage: 0.5 MG / KG / DAY
  6. CANDESARTAN CILEXETIL [Concomitant]
     Dosage: 160 MG, DAILY
  7. AMLODIPINE BESYLATE [Concomitant]
     Dosage: 5 MG, DAILY
     Route: 048
  8. ATORVASTATIN CALCIUM [Concomitant]
     Dosage: 20 MG, DAILY
     Route: 048
  9. CANDESARTAN CILEXETIL [Concomitant]
     Dosage: 16 MG,  DAILY
     Route: 048
  10. CERTICAN [Suspect]
     Dosage: 1.5 MG, BID
     Route: 048
     Dates: start: 20110601, end: 20111021
  11. PREDNISONE TAB [Concomitant]
     Dosage: 25 MG, DAILY
  12. FERROUS SULFATE TAB [Concomitant]
  13. PROGRAF [Concomitant]
     Dosage: 2 MG, BID
     Dates: start: 19660101, end: 20110601

REACTIONS (12)
  - BLOOD CREATININE INCREASED [None]
  - COUGH [None]
  - BLOOD UREA INCREASED [None]
  - DYSPNOEA [None]
  - LYMPHOCYTOSIS [None]
  - MUSCULOSKELETAL CHEST PAIN [None]
  - VITAMIN B12 INCREASED [None]
  - HAEMOGLOBIN DECREASED [None]
  - INTERSTITIAL LUNG DISEASE [None]
  - PYREXIA [None]
  - EOSINOPHILIA [None]
  - PO2 DECREASED [None]
